FAERS Safety Report 5648473-0 (Version None)
Quarter: 2008Q1

REPORT INFORMATION
  Report Type: 
  Country: None (occurrence: None)
  Receive Date: 20080304
  Receipt Date: 20080225
  Transmission Date: 20080703
  Serious: Yes (Other)
  Sender: FDA-Public Use
  Company Number: PHEH2008US02244

PATIENT
  Age: 58 Year
  Sex: Female

DRUGS (1)
  1. EXJADE [Suspect]
     Indication: IRON OVERLOAD
     Dosage: 10 MG/KG, QD
     Route: 048
     Dates: start: 20080110, end: 20080210

REACTIONS (1)
  - HAEMOGLOBIN DECREASED [None]
